FAERS Safety Report 4626293-3 (Version None)
Quarter: 2005Q2

REPORT INFORMATION
  Report Type: 
  Country: None (occurrence: None)
  Receive Date: 20050404
  Receipt Date: 20050324
  Transmission Date: 20051028
  Serious: Yes (Other)
  Sender: FDA-Public Use
  Company Number: DE-ROCHE-399926

PATIENT
  Sex: Male

DRUGS (3)
  1. PEGASYS [Suspect]
     Route: 058
  2. RIBAVIRIN [Suspect]
     Route: 065
  3. AMANTADINE HCL [Suspect]
     Route: 065

REACTIONS (3)
  - FACIAL PARESIS [None]
  - RENAL DISORDER [None]
  - SARCOIDOSIS [None]
